FAERS Safety Report 14017623 (Version 1)
Quarter: 2017Q3

REPORT INFORMATION
  Report Type: Spontaneous
  Country: CN (occurrence: CN)
  Receive Date: 20170927
  Receipt Date: 20170927
  Transmission Date: 20171128
  Serious: Yes (Other)
  Sender: FDA-Public Use
  Company Number: CN-TAKEDA-2017MPI008279

PATIENT
  Age: 31 Year
  Sex: Male
  Weight: 52 kg

DRUGS (1)
  1. VELCADE [Suspect]
     Active Substance: BORTEZOMIB
     Indication: PLASMA CELL MYELOMA
     Dosage: 1.8 MG, QD
     Route: 042
     Dates: start: 20170204, end: 20170206

REACTIONS (5)
  - Granulocytopenia [Recovering/Resolving]
  - Alopecia [Recovering/Resolving]
  - Vomiting [Recovering/Resolving]
  - Memory impairment [Recovering/Resolving]
  - Nausea [Recovering/Resolving]

NARRATIVE: CASE EVENT DATE: 20170206
